FAERS Safety Report 4477344-0 (Version None)
Quarter: 2004Q4

REPORT INFORMATION
  Report Type: 
  Country: None (occurrence: None)
  Receive Date: 20041013
  Receipt Date: 20040928
  Transmission Date: 20050328
  Serious: No
  Sender: FDA-Public Use
  Company Number: 2004GB02331

PATIENT
  Age: 68 Year
  Sex: Male
  Weight: 70 kg

DRUGS (6)
  1. GEFITINIB [Suspect]
     Indication: PROSTATE CANCER
     Dosage: 250 MG QD PO
     Route: 048
     Dates: start: 20040915, end: 20041004
  2. BICALUTAMIDE [Suspect]
     Indication: PROSTATE CANCER
     Dosage: 50 MG QD PO
     Route: 048
     Dates: start: 20040915
  3. GOSERELIN [Suspect]
     Indication: PROSTATE CANCER
     Dosage: 3.6 MG Q4WK SQ
     Dates: start: 20040920
  4. SALMETEROL/FLUTICASONE [Concomitant]
  5. SALBUTAMOL [Concomitant]
  6. LOW CENTYL K [Concomitant]

REACTIONS (1)
  - DERMATITIS ACNEIFORM [None]
